FAERS Safety Report 25450078 (Version 3)
Quarter: 2025Q2

REPORT INFORMATION
  Report Type: Spontaneous
  Country: CN (occurrence: CN)
  Receive Date: 20250618
  Receipt Date: 20250624
  Transmission Date: 20250716
  Serious: Yes (Life-Threatening, Hospitalization, Other)
  Sender: ARGENX BVBA
  Company Number: CN-ARGENX-2025-ARGX-CN007912

PATIENT

DRUGS (4)
  1. VYVGART [Suspect]
     Active Substance: EFGARTIGIMOD ALFA-FCAB
     Indication: Myasthenia gravis
     Route: 042
     Dates: start: 20250615, end: 20250615
  2. Immunoglobulin [Concomitant]
     Indication: Myasthenia gravis
     Route: 065
     Dates: start: 20250519, end: 20250524
  3. PYRIDOSTIGMINE BROMIDE [Concomitant]
     Active Substance: PYRIDOSTIGMINE BROMIDE
     Indication: Myasthenia gravis
     Route: 065
     Dates: start: 20250519
  4. SODIUM CHLORIDE [Concomitant]
     Active Substance: SODIUM CHLORIDE
     Indication: Vehicle solution use
     Route: 042
     Dates: start: 20250615, end: 20250615

REACTIONS (11)
  - Dyspnoea [Recovering/Resolving]
  - Oxygen saturation decreased [Recovering/Resolving]
  - Hypopnoea [Recovering/Resolving]
  - Angioedema [Recovering/Resolving]
  - Cold sweat [Recovering/Resolving]
  - Pyrexia [Recovered/Resolved]
  - Cough [Recovering/Resolving]
  - Heart rate increased [Recovering/Resolving]
  - Productive cough [Recovering/Resolving]
  - Dysphoria [Recovering/Resolving]
  - Hypersensitivity [Recovering/Resolving]

NARRATIVE: CASE EVENT DATE: 20250615
